FAERS Safety Report 4704885-0 (Version None)
Quarter: 2005Q2

REPORT INFORMATION
  Report Type: 
  Country: None (occurrence: None)
  Receive Date: 20050208
  Receipt Date: 20050208
  Transmission Date: 20051028
  Serious: No
  Sender: FDA-Public Use
  Company Number: None

PATIENT
  Age: 72 Year
  Sex: Male
  Weight: 122.9248 kg

DRUGS (2)
  1. PHENYTOIN SODIUM [Suspect]
     Indication: CONVULSION
     Dosage: 100MG 3 CAPS BID   YEARS
  2. PHENYTOIN SODIUM [Suspect]
     Indication: EPILEPSY
     Dosage: 100MG 3 CAPS BID   YEARS

REACTIONS (1)
  - HYPERSOMNIA [None]
